FAERS Safety Report 4947796-8 (Version None)
Quarter: 2006Q1

REPORT INFORMATION
  Report Type: 
  Country: None (occurrence: None)
  Receive Date: 20060320
  Receipt Date: 20060214
  Transmission Date: 20060701
  Serious: Yes (Hospitalization)
  Sender: FDA-Public Use
  Company Number: JP-JPN-A200600596

PATIENT
  Age: 59 Year
  Sex: Male

DRUGS (9)
  1. EPIVIR [Suspect]
     Indication: HIV INFECTION
     Dosage: 150MG TWICE PER DAY
     Route: 048
     Dates: start: 20051013
  2. RETROVIR [Suspect]
     Indication: HIV INFECTION
     Dosage: 200MG TWICE PER DAY
     Route: 048
     Dates: start: 20051013, end: 20051129
  3. RIMACTANE [Suspect]
     Indication: DISSEMINATED TUBERCULOSIS
     Dosage: 150MG THREE TIMES PER DAY
     Route: 048
     Dates: start: 20050610
  4. ISCOTIN [Suspect]
     Indication: DISSEMINATED TUBERCULOSIS
     Dosage: .4G PER DAY
     Route: 048
     Dates: start: 20050610
  5. ESANBUTOL [Suspect]
     Indication: DISSEMINATED TUBERCULOSIS
     Dosage: 250MG THREE TIMES PER DAY
     Route: 048
     Dates: start: 20050610
  6. COTRIM [Suspect]
     Dosage: 1G PER DAY
     Route: 048
     Dates: start: 20050610
  7. STOCRIN [Suspect]
     Indication: HIV INFECTION
     Dosage: 800MG PER DAY
     Route: 048
     Dates: start: 20051013
  8. ZIAGEN [Suspect]
     Indication: HIV INFECTION
     Dosage: 300MG TWICE PER DAY
     Route: 048
     Dates: start: 20051130, end: 20051216
  9. ZERIT [Concomitant]
     Indication: HIV INFECTION
     Route: 048
     Dates: start: 20051217

REACTIONS (5)
  - ERYTHEMA [None]
  - LEUKOPENIA [None]
  - PRURITUS [None]
  - RASH [None]
  - WHITE BLOOD CELL COUNT DECREASED [None]
